FAERS Safety Report 5346928-X (Version None)
Quarter: 2007Q2

REPORT INFORMATION
  Report Type: 
  Country: None (occurrence: None)
  Receive Date: 20070430
  Receipt Date: 20070115
  Transmission Date: 20071010
  Serious: No
  Sender: FDA-Public Use
  Company Number: 260040

PATIENT
  Age: 49 Year
  Sex: Female
  Weight: 113.4 kg

DRUGS (3)
  1. LEVEMIR [Suspect]
     Indication: INSULIN-REQUIRING TYPE II DIABETES MELLITUS
     Dosage: 25 IU, BID, SUBCUTANEOUS
     Route: 058
     Dates: start: 20061228
  2. GLUCOPHAGE [Concomitant]
  3. ACTOS [Concomitant]

REACTIONS (1)
  - BLOOD GLUCOSE INCREASED [None]
